FAERS Safety Report 13280784 (Version 2)
Quarter: 2017Q1

REPORT INFORMATION
  Report Type: Spontaneous
  Country: SG (occurrence: SG)
  Receive Date: 20170301
  Receipt Date: 20170304
  Transmission Date: 20170428
  Serious: Yes (Life-Threatening, Hospitalization, Other)
  Sender: FDA-Public Use
  Company Number: SG-SUN PHARMACEUTICAL INDUSTRIES LTD-2017US-134759

PATIENT
  Age: 68 Year
  Sex: Male

DRUGS (2)
  1. DEXAMETHASONE. [Suspect]
     Active Substance: DEXAMETHASONE
     Indication: SWELLING
  2. DEXAMETHASONE. [Suspect]
     Active Substance: DEXAMETHASONE
     Indication: INFLAMMATION
     Dosage: SHORT INNOCUOUS COURSE
     Route: 048
     Dates: start: 20110916

REACTIONS (1)
  - Phaeochromocytoma crisis [Unknown]

NARRATIVE: CASE EVENT DATE: 20110920
